FAERS Safety Report 16739946 (Version 1)
Quarter: 2019Q4

REPORT INFORMATION
  Report Type: Spontaneous
  Country: US (occurrence: US)
  Receive Date: 20190823
  Receipt Date: 20190823
  Transmission Date: 20200122
  Serious: Yes (Hospitalization)
  Sender: FDA-Public Use
  Company Number: None

PATIENT
  Age: 56 Year
  Sex: Female

DRUGS (16)
  1. ATORVASTATIN [Concomitant]
     Active Substance: ATORVASTATIN
  2. ANUCORT HC [Concomitant]
  3. ARIPRAZOLE [Concomitant]
     Active Substance: ARIPIPRAZOLE
  4. TRAZODONE [Concomitant]
     Active Substance: TRAZODONE HYDROCHLORIDE
  5. FLUCONAZOLE. [Concomitant]
     Active Substance: FLUCONAZOLE
  6. FUROSEMIDE. [Concomitant]
     Active Substance: FUROSEMIDE
  7. LINZESS [Concomitant]
     Active Substance: LINACLOTIDE
  8. CEPHALEXIN. [Concomitant]
     Active Substance: CEPHALEXIN
  9. METFORMIN [Concomitant]
     Active Substance: METFORMIN HYDROCHLORIDE
  10. BACLOFEN. [Concomitant]
     Active Substance: BACLOFEN
  11. MONTELUKAST [Concomitant]
     Active Substance: MONTELUKAST SODIUM
  12. PANTOPRAZOLE [Concomitant]
     Active Substance: PANTOPRAZOLE
  13. DIVALOPROEX [Concomitant]
  14. HUMIRA [Suspect]
     Active Substance: ADALIMUMAB
     Indication: PRODUCT USED FOR UNKNOWN INDICATION
     Dosage: ?          OTHER FREQUENCY:WEEKLY;?
     Route: 058
  15. ZOLPIDEM [Concomitant]
     Active Substance: ZOLPIDEM TARTRATE
  16. METHOTREXATE. [Concomitant]
     Active Substance: METHOTREXATE

REACTIONS (4)
  - Pneumonia [None]
  - Therapy cessation [None]
  - Nervous system disorder [None]
  - Infection [None]
